FAERS Safety Report 10058255 (Version 3)
Quarter: 2014Q2

REPORT INFORMATION
  Report Type: Spontaneous
  Country: US (occurrence: US)
  Receive Date: 20140404
  Receipt Date: 20140630
  Transmission Date: 20141212
  Serious: Yes (Other)
  Sender: FDA-Public Use
  Company Number: US-JNJFOC-20140315434

PATIENT
  Sex: Female

DRUGS (6)
  1. INVEGA SUSTENNA [Suspect]
     Indication: SCHIZOPHRENIA
     Route: 030
     Dates: start: 19950528, end: 20140404
  2. INVEGA SUSTENNA [Suspect]
     Indication: SCHIZOPHRENIA
     Dosage: 234MG/1.5ML
     Route: 030
     Dates: start: 20121106
  3. RISPERDAL [Suspect]
     Indication: DRUG THERAPY
     Route: 048
     Dates: start: 2001
  4. RISPERDAL [Suspect]
     Indication: DRUG THERAPY
     Route: 048
     Dates: start: 19940724
  5. TEGRETOL [Suspect]
     Indication: DRUG THERAPY
     Route: 048
     Dates: start: 201301
  6. TEGRETOL [Suspect]
     Indication: DRUG THERAPY
     Route: 048
     Dates: start: 2013

REACTIONS (8)
  - Abdominal pain [Not Recovered/Not Resolved]
  - Overdose [Not Recovered/Not Resolved]
  - Hallucination, visual [Not Recovered/Not Resolved]
  - Aggression [Not Recovered/Not Resolved]
  - Mood swings [Not Recovered/Not Resolved]
  - Sleep disorder [Not Recovered/Not Resolved]
  - Thinking abnormal [Not Recovered/Not Resolved]
  - Inappropriate schedule of drug administration [Unknown]
